FAERS Safety Report 7457468-6 (Version None)
Quarter: 2011Q2

REPORT INFORMATION
  Report Type: 
  Country: None (occurrence: None)
  Receive Date: 20110426
  Receipt Date: 20110411
  Transmission Date: 20111010
  Serious: Yes (Other)
  Sender: FDA-Public Use
  Company Number: AUR-APL-2011-01269

PATIENT
  Age: 67 Year
  Sex: Female

DRUGS (1)
  1. CEFTRIAXONE [Suspect]

REACTIONS (3)
  - RASH MACULO-PAPULAR [None]
  - JOINT SWELLING [None]
  - PYREXIA [None]
